FAERS Safety Report 9938342 (Version 1)
Quarter: 2014Q1

REPORT INFORMATION
  Report Type: Report from Study
  Country: US (occurrence: US)
  Receive Date: 20140303
  Receipt Date: 20140303
  Transmission Date: 20141002
  Serious: Yes (Hospitalization)
  Sender: FDA-Public Use
  Company Number: US-ABBVIE-13P-163-1031685-00

PATIENT
  Sex: 0

DRUGS (2)
  1. HUMIRA [Suspect]
     Indication: CROHN^S DISEASE
     Route: 058
     Dates: start: 201002, end: 201101
  2. HUMIRA [Suspect]
     Route: 058
     Dates: start: 201101

REACTIONS (2)
  - Anal abscess [Recovered/Resolved]
  - Weight increased [Not Recovered/Not Resolved]
